FAERS Safety Report 9899159 (Version 2)
Quarter: 2014Q1

REPORT INFORMATION
  Report Type: Spontaneous
  Country: US (occurrence: US)
  Receive Date: 20140214
  Receipt Date: 20140214
  Transmission Date: 20141002
  Serious: No
  Sender: FDA-Public Use
  Company Number: US-GILEAD-2011-0042935

PATIENT
  Sex: Male

DRUGS (5)
  1. LETAIRIS [Suspect]
     Indication: PULMONARY HYPERTENSION
     Route: 048
     Dates: start: 20110727, end: 20110906
  2. LETAIRIS [Suspect]
     Indication: HEPATOCELLULAR CARCINOMA
  3. LETAIRIS [Suspect]
     Indication: HEPATITIS C
  4. LETAIRIS [Suspect]
     Indication: HEPATOPULMONARY SYNDROME
  5. TRACLEER [Concomitant]

REACTIONS (3)
  - Fatigue [Unknown]
  - Oedema [Unknown]
  - Abdominal pain upper [Unknown]
